FAERS Safety Report 23871140 (Version 2)
Quarter: 2024Q2

REPORT INFORMATION
  Report Type: Report from Study
  Country: US (occurrence: US)
  Receive Date: 20240518
  Receipt Date: 20240528
  Transmission Date: 20240716
  Serious: Yes (Death)
  Sender: FDA-Public Use
  Company Number: US-JNJFOC-20240540806

PATIENT
  Age: 20 Year
  Sex: Female

DRUGS (2)
  1. SPRAVATO [Suspect]
     Active Substance: ESKETAMINE
     Indication: Depression
     Dosage: 56 MG, 1 DOSE
     Dates: start: 20240123, end: 20240123
  2. SPRAVATO [Suspect]
     Active Substance: ESKETAMINE
     Dosage: 84 MG, 8 DOSES
     Dates: start: 20240130, end: 20240306

REACTIONS (1)
  - Death [Fatal]
